FAERS Safety Report 25543555 (Version 1)
Quarter: 2025Q3

REPORT INFORMATION
  Report Type: Spontaneous
  Country: US (occurrence: US)
  Receive Date: 20250711
  Receipt Date: 20250711
  Transmission Date: 20251020
  Serious: Yes (Hospitalization, Other)
  Sender: RANBAXY
  Company Number: US-SUN PHARMACEUTICAL INDUSTRIES LTD-2025R1-515970

PATIENT
  Sex: Male

DRUGS (2)
  1. PSEUDOEPHEDRINE [Suspect]
     Active Substance: PSEUDOEPHEDRINE
     Indication: Nasal congestion
     Route: 065
     Dates: start: 20250606
  2. PSEUDOEPHEDRINE [Suspect]
     Active Substance: PSEUDOEPHEDRINE
     Route: 065
     Dates: start: 20250607

REACTIONS (8)
  - Bladder dilatation [Unknown]
  - Electrolyte imbalance [Unknown]
  - Hypotension [Unknown]
  - Heart rate increased [Unknown]
  - Urinary retention [Unknown]
  - Thrombosis [Unknown]
  - Urinary bladder haemorrhage [Unknown]
  - Fatigue [Unknown]

NARRATIVE: CASE EVENT DATE: 20250101
